FAERS Safety Report 14339886 (Version 1)
Quarter: 2017Q4

REPORT INFORMATION
  Report Type: Spontaneous
  Country: GB (occurrence: GB)
  Receive Date: 20171230
  Receipt Date: 20171230
  Transmission Date: 20180321
  Serious: Yes (Other)
  Sender: FDA-Public Use
  Company Number: GB-MYLANLABS-2017M1083290

PATIENT
  Age: 56 Year
  Sex: Female
  Weight: 76.2 kg

DRUGS (2)
  1. MIRTAZAPINE. [Suspect]
     Active Substance: MIRTAZAPINE
     Indication: PRODUCT USED FOR UNKNOWN INDICATION
     Route: 048
     Dates: start: 20171128, end: 20171129
  2. PROPRANOLOL HYDROCHLORIDE. [Concomitant]
     Active Substance: PROPRANOLOL HYDROCHLORIDE

REACTIONS (8)
  - Psychotic disorder [Unknown]
  - Anger [Recovering/Resolving]
  - Insomnia [Unknown]
  - Trance [Unknown]
  - Screaming [Unknown]
  - Diarrhoea [Unknown]
  - Depression suicidal [Recovering/Resolving]
  - Restless legs syndrome [Unknown]

NARRATIVE: CASE EVENT DATE: 20171128
